FAERS Safety Report 6652708-5 (Version None)
Quarter: 2010Q1

REPORT INFORMATION
  Report Type: 
  Country: None (occurrence: None)
  Receive Date: 20100326
  Receipt Date: 20100313
  Transmission Date: 20100710
  Serious: Yes (Other)
  Sender: FDA-Public Use
  Company Number: US-JNJFOC-20090707435

PATIENT
  Sex: Male
  Weight: 88.91 kg

DRUGS (2)
  1. LEVAQUIN [Suspect]
     Indication: PROSTATIC OPERATION
     Route: 048
  2. SYNTHROID [Concomitant]
     Indication: HYPOTHYROIDISM
     Route: 048

REACTIONS (5)
  - CHROMATURIA [None]
  - JAUNDICE [None]
  - LETHARGY [None]
  - TRANSAMINASES INCREASED [None]
  - WEIGHT DECREASED [None]
